FAERS Safety Report 22382397 (Version 7)
Quarter: 2024Q1

REPORT INFORMATION
  Report Type: Spontaneous
  Country: PT (occurrence: PT)
  Receive Date: 20230530
  Receipt Date: 20240223
  Transmission Date: 20240410
  Serious: Yes (Hospitalization, Other)
  Sender: FDA-Public Use
  Company Number: PT-MYLANLABS-2023M1051621

PATIENT
  Age: 23 Year
  Sex: Male

DRUGS (11)
  1. TRAMADOL [Interacting]
     Active Substance: TRAMADOL\TRAMADOL HYDROCHLORIDE
     Indication: Product used for unknown indication
     Dosage: 200 MILLIGRAM (ADMINISTERED, MOMENTS BEFORE THE)
     Route: 065
  2. MIDOMAFETAMINE [Interacting]
     Active Substance: MIDOMAFETAMINE
     Indication: Product used for unknown indication
     Dosage: UNK
     Route: 065
  3. FENTANYL [Interacting]
     Active Substance: FENTANYL\FENTANYL CITRATE
     Indication: Induction of anaesthesia
     Dosage: 2 MILLIGRAM/KILOGRAM,(ANESTHETIC INDUCTION)
     Route: 065
  4. FENTANYL [Interacting]
     Active Substance: FENTANYL\FENTANYL CITRATE
     Dosage: UNK,(STRENGTH OF 2 MG/KG)
     Route: 065
  5. LIDOCAINE [Concomitant]
     Active Substance: LIDOCAINE
     Indication: Induction of anaesthesia
     Dosage: 1 MILLIGRAM/KILOGRAM,(ANESTHETIC INDUCTION)
     Route: 065
  6. LIDOCAINE [Concomitant]
     Active Substance: LIDOCAINE
     Dosage: UNK,(STRENGTH OF 1 MG/KG)
     Route: 065
  7. DESFLURANE [Concomitant]
     Active Substance: DESFLURANE
     Indication: Maintenance of anaesthesia
     Dosage: UNK,(MAINTENANCE)
     Route: 065
  8. PROPOFOL [Concomitant]
     Active Substance: PROPOFOL
     Indication: Induction of anaesthesia
     Dosage: 2 MILLIGRAM/KILOGRAM,(ANESTHETIC INDUCTION)
     Route: 065
  9. PROPOFOL [Concomitant]
     Active Substance: PROPOFOL
     Dosage: 80 MILLIGRAM
     Route: 065
  10. PROPOFOL [Concomitant]
     Active Substance: PROPOFOL
     Dosage: UNK,(STRENGTH OF 2 MG/KG)
     Route: 065
  11. LYSERGIDE [Concomitant]
     Active Substance: LYSERGIDE
     Dosage: UNK
     Route: 065

REACTIONS (7)
  - Hypercapnia [Recovered/Resolved]
  - Hyperlactacidaemia [Recovered/Resolved]
  - Respiratory acidosis [Recovered/Resolved]
  - Clonus [Recovered/Resolved]
  - Serotonin syndrome [Recovered/Resolved]
  - Drug interaction [Unknown]
  - Overdose [Unknown]
